FAERS Safety Report 7836977-1 (Version None)
Quarter: 2011Q4

REPORT INFORMATION
  Report Type: 
  Country: None (occurrence: None)
  Receive Date: 20111024
  Receipt Date: 20110125
  Transmission Date: 20120403
  Serious: No
  Sender: FDA-Public Use
  Company Number: US-ABBOTT-11P-163-0695737-00

PATIENT
  Sex: Female
  Weight: 71.278 kg

DRUGS (12)
  1. SPIRONOLACTONE [Concomitant]
     Indication: CARDIOMYOPATHY
  2. LASIX [Concomitant]
     Indication: CARDIOMYOPATHY
  3. COREG [Concomitant]
     Indication: CARDIOMYOPATHY
  4. HYDROXYCHLOROQUINE SULFATE [Concomitant]
     Indication: SYSTEMIC LUPUS ERYTHEMATOSUS
  5. FOLTYX [Concomitant]
     Indication: SYSTEMIC LUPUS ERYTHEMATOSUS
  6. SINGULAIR [Concomitant]
     Indication: ASTHMA
  7. MELOXICAM [Concomitant]
     Indication: SYSTEMIC LUPUS ERYTHEMATOSUS
  8. ALLEGRA [Concomitant]
     Indication: HYPERSENSITIVITY
  9. LUPRON DEPOT [Suspect]
     Indication: UTERINE LEIOMYOMA
     Dates: start: 20100105
  10. DIGOXIN [Concomitant]
     Indication: CARDIOMYOPATHY
  11. LEXAPRO [Concomitant]
     Indication: DEPRESSION
  12. QUINAPRIL [Concomitant]
     Indication: CARDIOMYOPATHY

REACTIONS (1)
  - ABDOMINAL PAIN LOWER [None]
